FAERS Safety Report 9852086 (Version 2)
Quarter: 2014Q2

REPORT INFORMATION
  Report Type: Spontaneous
  Country: US (occurrence: None)
  Receive Date: 20140127
  Receipt Date: 20140605
  Transmission Date: 20141212
  Serious: Yes (Hospitalization)
  Sender: FDA-Public Use
  Company Number: UTC-043615

PATIENT
  Age: 75 Year
  Sex: Male
  Weight: 89 kg

DRUGS (3)
  1. TYVASO [Suspect]
     Indication: PULMONARY ARTERIAL HYPERTENSION
     Route: 055
     Dates: start: 20120822
  2. ADCIRCA (TADALAFIL) [Concomitant]
  3. ASA (ACETYLSALICYLIC ACID) [Concomitant]

REACTIONS (3)
  - Myocardial infarction [None]
  - Lower respiratory tract infection [None]
  - Dyspnoea [None]
